FAERS Safety Report 7927977-1 (Version None)
Quarter: 2011Q4

REPORT INFORMATION
  Report Type: 
  Country: None (occurrence: None)
  Receive Date: 20111118
  Receipt Date: 20111114
  Transmission Date: 20120403
  Serious: Yes (Other)
  Sender: FDA-Public Use
  Company Number: SE-JNJFOC-20111101856

PATIENT
  Sex: Male

DRUGS (3)
  1. CETIRIZINE HCL [Suspect]
     Route: 048
  2. CETIRIZINE HCL [Suspect]
     Indication: PRODUCT USED FOR UNKNOWN INDICATION
     Route: 048
     Dates: end: 20110401
  3. DESLORATADINE [Suspect]
     Indication: PRODUCT USED FOR UNKNOWN INDICATION
     Route: 048
     Dates: start: 20110401

REACTIONS (3)
  - HALLUCINATION [None]
  - IRRITABILITY [None]
  - FATIGUE [None]
